FAERS Safety Report 16656178 (Version 3)
Quarter: 2019Q3

REPORT INFORMATION
  Report Type: Spontaneous
  Country: US (occurrence: US)
  Receive Date: 20190801
  Receipt Date: 20190919
  Transmission Date: 20191004
  Serious: Yes (Other)
  Sender: FDA-Public Use
  Company Number: US-PFIZER INC-2019328736

PATIENT
  Sex: Female

DRUGS (3)
  1. DILANTIN [Suspect]
     Active Substance: PHENYTOIN
     Indication: EPILEPSY
  2. PHENOBARBITAL. [Concomitant]
     Active Substance: PHENOBARBITAL
     Indication: SEIZURE
     Dosage: 97.5 MG, DAILY (1 TABLET IN THE AM AND 2 TABLETS IN THE PM)
     Dates: start: 1985
  3. DILANTIN [Suspect]
     Active Substance: PHENYTOIN
     Indication: SEIZURE
     Dosage: 300 MG, DAILY (100 MG IN THE AM AND 200 MG AT PM)
     Route: 048
     Dates: start: 1985

REACTIONS (2)
  - Plantar fascial fibromatosis [Unknown]
  - Pain in extremity [Unknown]
